FAERS Safety Report 10284725 (Version 1)
Quarter: 2014Q3

REPORT INFORMATION
  Report Type: Spontaneous
  Country: US (occurrence: None)
  Receive Date: 20140702
  Receipt Date: 20140702
  Transmission Date: 20150326
  Serious: No
  Sender: FDA-Public Use
  Company Number: None

PATIENT
  Age: 58 Year
  Sex: Male
  Weight: 80.74 kg

DRUGS (1)
  1. LAMICTAL [Suspect]
     Active Substance: LAMOTRIGINE
     Indication: DEPRESSION
     Dosage: ONCE DAILY
     Dates: start: 20140201, end: 20140609

REACTIONS (5)
  - Dissociation [None]
  - Therapy change [None]
  - Emotional disorder [None]
  - Impaired work ability [None]
  - Suicidal ideation [None]
